FAERS Safety Report 16286087 (Version 3)
Quarter: 2020Q2

REPORT INFORMATION
  Report Type: Spontaneous
  Country: US (occurrence: US)
  Receive Date: 20190508
  Receipt Date: 20200522
  Transmission Date: 20200713
  Serious: No
  Sender: FDA-Public Use
  Company Number: US-PFIZER INC-2019191645

PATIENT
  Age: 46 Year
  Sex: Female

DRUGS (1)
  1. TIGAN [Suspect]
     Active Substance: TRIMETHOBENZAMIDE HYDROCHLORIDE
     Dosage: UNK
     Route: 030

REACTIONS (4)
  - Product use issue [Unknown]
  - Off label use [Unknown]
  - Drug hypersensitivity [Unknown]
  - Swelling [Unknown]
